FAERS Safety Report 4498263-X (Version None)
Quarter: 2004Q3

REPORT INFORMATION
  Report Type: 
  Country: None (occurrence: None)
  Receive Date: 20040927
  Receipt Date: 20040610
  Transmission Date: 20050211
  Serious: No
  Sender: FDA-Public Use
  Company Number: USA040669843

PATIENT
  Age: 7 Year
  Sex: Male
  Weight: 27 kg

DRUGS (2)
  1. STRATTERA [Suspect]
     Indication: ATTENTION DEFICIT/HYPERACTIVITY DISORDER
     Dosage: 18 MG DAY
     Dates: start: 20040501, end: 20040601
  2. ZONEGRAN (ZONIDAMIDE) [Concomitant]

REACTIONS (4)
  - AGGRESSION [None]
  - CRYING [None]
  - LEARNING DISORDER [None]
  - MOOD SWINGS [None]
